FAERS Safety Report 16685801 (Version 1)
Quarter: 2019Q3

REPORT INFORMATION
  Report Type: Spontaneous
  Country: US (occurrence: US)
  Receive Date: 20190809
  Receipt Date: 20190809
  Transmission Date: 20191004
  Serious: No
  Sender: FDA-Public Use
  Company Number: US-SA-2019SA216209

PATIENT
  Age: 50 Year
  Sex: Female

DRUGS (11)
  1. PROGESTERONE. [Concomitant]
     Active Substance: PROGESTERONE
  2. WELLBUTRIN [Concomitant]
     Active Substance: BUPROPION HYDROCHLORIDE
  3. AMLODIPINE BESYLATE. [Concomitant]
     Active Substance: AMLODIPINE BESYLATE
  4. ARMODAFINIL. [Concomitant]
     Active Substance: ARMODAFINIL
  5. DIAZEPAM. [Concomitant]
     Active Substance: DIAZEPAM
  6. AUBAGIO [Suspect]
     Active Substance: TERIFLUNOMIDE
     Indication: PRODUCT USE IN UNAPPROVED INDICATION
     Dosage: 14 MG, QD
     Route: 048
     Dates: start: 20190619
  7. ABILIFY [Concomitant]
     Active Substance: ARIPIPRAZOLE
  8. EFFEXOR XR [Concomitant]
     Active Substance: VENLAFAXINE HYDROCHLORIDE
  9. MULTIVITAMINS [VITAMINS NOS] [Concomitant]
     Active Substance: VITAMINS
  10. BUPRENORPHINE. [Concomitant]
     Active Substance: BUPRENORPHINE
  11. ESTRADIOL. [Concomitant]
     Active Substance: ESTRADIOL

REACTIONS (4)
  - Fall [Not Recovered/Not Resolved]
  - Upper limb fracture [Not Recovered/Not Resolved]
  - Condition aggravated [Not Recovered/Not Resolved]
  - Depression [Not Recovered/Not Resolved]

NARRATIVE: CASE EVENT DATE: 2019
